FAERS Safety Report 6607779-9 (Version None)
Quarter: 2010Q1

REPORT INFORMATION
  Report Type: 
  Country: None (occurrence: None)
  Receive Date: 20100301
  Receipt Date: 20100222
  Transmission Date: 20100710
  Serious: Yes (Hospitalization)
  Sender: FDA-Public Use
  Company Number: AU-ASTRAZENECA-2010SE07667

PATIENT
  Age: 27119 Day
  Sex: Female
  Weight: 65 kg

DRUGS (1)
  1. ARIMIDEX [Suspect]
     Indication: BREAST CANCER FEMALE
     Route: 048
     Dates: start: 20081217

REACTIONS (2)
  - CHEST PAIN [None]
  - FAECES DISCOLOURED [None]
